FAERS Safety Report 20653899 (Version 11)
Quarter: 2024Q3

REPORT INFORMATION
  Report Type: Spontaneous
  Country: US (occurrence: US)
  Receive Date: 20220330
  Receipt Date: 20240809
  Transmission Date: 20241017
  Serious: No
  Sender: PFIZER
  Company Number: US-PFIZER INC-202101742811

PATIENT
  Age: 71 Year
  Sex: Female

DRUGS (2)
  1. IBRANCE [Suspect]
     Active Substance: PALBOCICLIB
     Indication: Hormone receptor positive breast cancer
     Dosage: 125 MG
  2. IBRANCE [Suspect]
     Active Substance: PALBOCICLIB
     Dosage: 75 MG, CYCLIC (TAKE 1 TAB BY MOUTH DAILY, 21 DAYS ON AND 7 DAYS OFF)
     Route: 048

REACTIONS (6)
  - Somnolence [Unknown]
  - Laboratory test abnormal [Unknown]
  - Stress [Unknown]
  - Sleep disorder [Unknown]
  - Fatigue [Unknown]
  - Product dose omission issue [Unknown]
